FAERS Safety Report 14478886 (Version 1)
Quarter: 2018Q1

REPORT INFORMATION
  Report Type: Spontaneous
  Country: US (occurrence: US)
  Receive Date: 20180202
  Receipt Date: 20180202
  Transmission Date: 20180509
  Serious: No
  Sender: FDA-Public Use
  Company Number: US-PFIZER INC-2018043099

PATIENT
  Age: 79 Year
  Sex: Male
  Weight: 123.38 kg

DRUGS (1)
  1. LYRICA [Suspect]
     Active Substance: PREGABALIN
     Indication: NEUROPATHY PERIPHERAL
     Dosage: 300 MG, 3X/DAY
     Route: 048

REACTIONS (3)
  - Malaise [Unknown]
  - Influenza [Unknown]
  - Overdose [Unknown]

NARRATIVE: CASE EVENT DATE: 201801
